FAERS Safety Report 7287125-0 (Version None)
Quarter: 2011Q1

REPORT INFORMATION
  Report Type: 
  Country: None (occurrence: None)
  Receive Date: 20110211
  Receipt Date: 20110131
  Transmission Date: 20110831
  Serious: Yes (Other)
  Sender: FDA-Public Use
  Company Number: JP-ROCHE-757679

PATIENT
  Age: 1 Year

DRUGS (1)
  1. TAMIFLU [Suspect]
     Dosage: DOSAGE IS UNCERTAIN.
     Route: 048

REACTIONS (2)
  - ABNORMAL BEHAVIOUR [None]
  - GAIT DISTURBANCE [None]
